FAERS Safety Report 5026406-8 (Version None)
Quarter: 2006Q2

REPORT INFORMATION
  Report Type: 
  Country: None (occurrence: None)
  Receive Date: 20060426
  Receipt Date: 20060315
  Transmission Date: 20061013
  Serious: Yes (Other)
  Sender: FDA-Public Use
  Company Number: 2006037329

PATIENT
  Age: 60 Year
  Sex: Female
  Weight: 81.6475 kg

DRUGS (10)
  1. LYRICA [Suspect]
     Indication: NEURALGIA
     Dosage: 50 MG (50 MG, 1 IN 1 D), ORAL
     Route: 048
     Dates: start: 20051101
  2. AMITRIPTYLINE HCL [Concomitant]
  3. ALOMIDE (LODOXAMIDE) [Concomitant]
  4. ESTRACE [Concomitant]
  5. ACCOLATE [Concomitant]
  6. PROVERA [Concomitant]
  7. PRILOSEC [Concomitant]
  8. PERCOCET [Concomitant]
  9. VALIUM [Concomitant]
  10. AMBIEN [Concomitant]

REACTIONS (6)
  - CONSTIPATION [None]
  - INSOMNIA [None]
  - MYALGIA [None]
  - OEDEMA [None]
  - PHOTOSENSITIVITY REACTION [None]
  - SACRAL PAIN [None]
